FAERS Safety Report 12648965 (Version 1)
Quarter: 2016Q3

REPORT INFORMATION
  Report Type: Report from Study
  Country: KR (occurrence: KR)
  Receive Date: 20160812
  Receipt Date: 20160812
  Transmission Date: 20161109
  Serious: Yes (Hospitalization)
  Sender: FDA-Public Use
  Company Number: KR-CELLTRION INC.-2016KR001076

PATIENT

DRUGS (6)
  1. LANSTON LFDT [Concomitant]
     Active Substance: LANSOPRAZOLE
     Indication: GASTROOESOPHAGEAL REFLUX DISEASE
     Dosage: 1 DF, DAILY
     Route: 048
     Dates: start: 20150923
  2. REMSIMA [Suspect]
     Active Substance: INFLIXIMAB
     Dosage: 280 MG, ^ACCORDING TO THE APPROVED LABEL^
     Route: 042
     Dates: start: 20160126, end: 20160126
  3. AZATHIOPRINE PCH [Concomitant]
     Indication: CROHN^S DISEASE
     Dosage: 1 DF, DAILY
     Route: 048
     Dates: start: 20150825
  4. SOLONDO [Concomitant]
     Active Substance: PREDNISOLONE
     Indication: CROHN^S DISEASE
     Dosage: 1 DF, TID
     Route: 048
     Dates: start: 20150504, end: 20151123
  5. REMSIMA [Suspect]
     Active Substance: INFLIXIMAB
     Dosage: 280 MG, ^ACCORDING TO THE APPROVED LABEL^
     Route: 042
     Dates: start: 20151215, end: 20151215
  6. REMSIMA [Suspect]
     Active Substance: INFLIXIMAB
     Indication: CROHN^S DISEASE
     Dosage: 280 MG, ^ACCORDING TO THE APPROVED LABEL^
     Route: 042
     Dates: start: 20151112, end: 20151112

REACTIONS (1)
  - Crohn^s disease [Recovered/Resolved]

NARRATIVE: CASE EVENT DATE: 20160102
